FAERS Safety Report 4740470-2 (Version None)
Quarter: 2005Q3

REPORT INFORMATION
  Report Type: 
  Country: None (occurrence: None)
  Receive Date: 20050805
  Receipt Date: 20050722
  Transmission Date: 20060218
  Serious: Yes (Hospitalization)
  Sender: FDA-Public Use
  Company Number: SUSI-2005-00537

PATIENT
  Age: 33 Year
  Sex: Male

DRUGS (4)
  1. PENTASA [Suspect]
     Indication: CROHN'S DISEASE
     Dosage: 1500 MG DAILY, ORAL
     Route: 048
     Dates: start: 19990112, end: 20050617
  2. OMEPRAZOLE [Concomitant]
  3. SODIUM CITRATE [Concomitant]
  4. LORNOXICAM (LORNOXICAN) [Concomitant]

REACTIONS (6)
  - ANOREXIA [None]
  - MALAISE [None]
  - MYOGLOBIN BLOOD INCREASED [None]
  - MYOGLOBIN URINE PRESENT [None]
  - RENAL DISORDER [None]
  - RENAL IMPAIRMENT [None]
